FAERS Safety Report 9169096 (Version 2)
Quarter: 2013Q2

REPORT INFORMATION
  Report Type: Spontaneous
  Country: US (occurrence: US)
  Receive Date: 20130318
  Receipt Date: 20130418
  Transmission Date: 20140414
  Serious: Yes (Death, Hospitalization)
  Sender: FDA-Public Use
  Company Number: US-GLAXOSMITHKLINE-A1016022A

PATIENT
  Age: 52 Year
  Sex: Female

DRUGS (1)
  1. FLOLAN [Suspect]
     Indication: PULMONARY ARTERIAL HYPERTENSION
     Dosage: 34NGKM CONTINUOUS
     Route: 042
     Dates: start: 20120208

REACTIONS (3)
  - Death [Fatal]
  - Pulmonary hypertension [Unknown]
  - Dyspnoea [Unknown]
